FAERS Safety Report 4837983-1 (Version None)
Quarter: 2005Q4

REPORT INFORMATION
  Report Type: 
  Country: None (occurrence: None)
  Receive Date: 20051128
  Receipt Date: 20050721
  Transmission Date: 20060501
  Serious: Yes (Other)
  Sender: FDA-Public Use
  Company Number: US-ROCHE-411818

PATIENT
  Age: 15 Year
  Sex: Male
  Weight: 67 kg

DRUGS (4)
  1. LARIAM [Suspect]
     Indication: MALARIA PROPHYLAXIS
     Route: 048
     Dates: start: 20050611, end: 20050708
  2. FOSAMPRENAVIR [Concomitant]
     Route: 048
     Dates: end: 20050721
  3. RITONAVIR [Concomitant]
     Route: 048
     Dates: end: 20050721
  4. EPZICOM [Concomitant]
     Route: 048
     Dates: end: 20050721

REACTIONS (1)
  - BLOOD CREATINE PHOSPHOKINASE INCREASED [None]
